FAERS Safety Report 8876891 (Version 1)
Quarter: 2012Q4

REPORT INFORMATION
  Report Type: 
  Country: CA (occurrence: CA)
  Receive Date: 20121029
  Receipt Date: 20121029
  Transmission Date: 20130627
  Serious: Yes (Other)
  Sender: FDA-Public Use
  Company Number: CA-PFIZER INC-2012265362

PATIENT
  Age: 48 Year
  Sex: Male

DRUGS (3)
  1. DOXYCYCLINE HYCLATE [Suspect]
     Indication: Q FEVER
     Dosage: UNK
  2. BENZODIAZEPINE DERIVATIVES [Concomitant]
     Dosage: UNK
  3. TADALAFIL [Concomitant]
     Dosage: UNK

REACTIONS (1)
  - Venoocclusive liver disease [Recovering/Resolving]
